FAERS Safety Report 7156314-8 (Version None)
Quarter: 2010Q4

REPORT INFORMATION
  Report Type: 
  Country: None (occurrence: None)
  Receive Date: 20101123
  Receipt Date: 20101006
  Transmission Date: 20110411
  Serious: Yes (Hospitalization)
  Sender: FDA-Public Use
  Company Number: 014659

PATIENT
  Age: 24 Year
  Sex: Female
  Weight: 52 kg

DRUGS (6)
  1. CIMZIA [Suspect]
     Indication: CROHN'S DISEASE
     Dosage: 400 MG 1X/2 WEEKS, NBR OF DOSES: 3 SUBCUTANEOUS, 400 MG 1X4 WEEKS SUBCUTANEOUS, SUBCUTANEOUS
     Route: 058
     Dates: start: 20100616
  2. PREDNISONE [Concomitant]
  3. IMURAN [Concomitant]
  4. PROTONIX [Concomitant]
  5. LOESTRIN 1.5/30 [Concomitant]
  6. COUMADIN [Concomitant]

REACTIONS (3)
  - DEEP VEIN THROMBOSIS [None]
  - PORTAL VEIN THROMBOSIS [None]
  - PULMONARY EMBOLISM [None]
